FAERS Safety Report 8577020-9 (Version None)
Quarter: 2012Q2

REPORT INFORMATION
  Report Type: 
  Country: None (occurrence: None)
  Receive Date: 20120423
  Receipt Date: 20090908
  Transmission Date: 20120825
  Serious: Yes (Hospitalization)
  Sender: FDA-Public Use
  Company Number: PHEH2009US09117

PATIENT
  Sex: Female

DRUGS (1)
  1. EXJADE (*CGP 72670*) DISPERISBLE TABLET [Suspect]
     Dosage: 500 , DAILY, ORAL
     Route: 048
     Dates: start: 20090711

REACTIONS (5)
  - NAUSEA [None]
  - PYREXIA [None]
  - VOMITING [None]
  - DIARRHOEA [None]
  - HEADACHE [None]
